FAERS Safety Report 9976601 (Version 1)
Quarter: 2014Q1

REPORT INFORMATION
  Report Type: Report from Study
  Country: US (occurrence: US)
  Receive Date: 20140306
  Receipt Date: 20140306
  Transmission Date: 20141002
  Serious: No
  Sender: FDA-Public Use
  Company Number: US-ABBVIE-13P-163-1166549-00

PATIENT
  Sex: Female

DRUGS (4)
  1. HUMIRA [Suspect]
     Indication: DISEASE PROGRESSION
  2. TOPICAL TREATMENT [Concomitant]
     Indication: PRODUCT USED FOR UNKNOWN INDICATION
  3. TRADITIONAL SYSTEMIC [Concomitant]
     Indication: PRODUCT USED FOR UNKNOWN INDICATION
  4. STELARA [Concomitant]
     Indication: PRODUCT USED FOR UNKNOWN INDICATION

REACTIONS (1)
  - Drug ineffective [Unknown]
